FAERS Safety Report 26076994 (Version 1)
Quarter: 2025Q4

REPORT INFORMATION
  Report Type: Spontaneous
  Country: US (occurrence: None)
  Receive Date: 20251121
  Receipt Date: 20251121
  Transmission Date: 20260117
  Serious: No
  Sender: FDA-CTU
  Company Number: None

PATIENT
  Sex: Female
  Weight: 58.5 kg

DRUGS (5)
  1. ICATIBANT ACETATE [Suspect]
     Active Substance: ICATIBANT ACETATE
     Indication: Immune system disorder
     Dosage: FREQUENCY : AS NEEDED;?
     Route: 058
     Dates: start: 20240207
  2. ANDEMBRY [Suspect]
     Active Substance: GARADACIMAB-GXII
  3. NORMAL SALINE FLUSH (5ML) [Concomitant]
  4. EPINEPHRINE AUTO-INJ [Concomitant]
  5. FASENRA SYR [Concomitant]

REACTIONS (2)
  - Swelling [None]
  - Swelling face [None]
